FAERS Safety Report 6887201-8 (Version None)
Quarter: 2010Q3

REPORT INFORMATION
  Report Type: 
  Country: None (occurrence: None)
  Receive Date: 20100730
  Receipt Date: 20100720
  Transmission Date: 20110219
  Serious: Yes (Other)
  Sender: FDA-Public Use
  Company Number: BR-PFIZER INC-2010049003

PATIENT
  Age: 54 Year
  Sex: Female
  Weight: 61 kg

DRUGS (10)
  1. CHAMPIX [Suspect]
     Indication: TOBACCO USER
     Dosage: 0.5 MG, EVERY 24 HOURS
     Route: 048
     Dates: start: 20100409, end: 20100701
  2. PHENOBARBITAL [Concomitant]
     Indication: TAENIASIS
     Dosage: UNK
     Dates: start: 20060101
  3. PHENOBARBITAL [Concomitant]
     Indication: EPILEPSY
  4. SIMVASTATIN [Concomitant]
     Indication: BLOOD CHOLESTEROL INCREASED
     Dosage: UNK
     Dates: start: 20070101
  5. PREMARIN [Concomitant]
     Indication: HORMONE REPLACEMENT THERAPY
     Dosage: UNK
     Dates: start: 20070101
  6. BROMAZEPAM [Concomitant]
     Indication: SEDATIVE THERAPY
     Dosage: UNK
     Dates: start: 20000101
  7. BROMAZEPAM [Concomitant]
     Indication: EPILEPSY
  8. BROMAZEPAM [Concomitant]
     Indication: TAENIASIS
  9. DEPAKOTE [Concomitant]
     Indication: EPILEPSY
     Dosage: UNK
  10. DEPAKOTE [Concomitant]
     Indication: TAENIASIS

REACTIONS (3)
  - DEPRESSION [None]
  - MEMORY IMPAIRMENT [None]
  - NERVOUSNESS [None]
